FAERS Safety Report 11358733 (Version 1)
Quarter: 2015Q3

REPORT INFORMATION
  Report Type: Spontaneous
  Country: US (occurrence: None)
  Receive Date: 20150716
  Receipt Date: 20150716
  Transmission Date: 20151125
  Serious: Yes (Other)
  Sender: FDA-Public Use
  Company Number: 2015PROUSA04363

PATIENT
  Age: 73 Year
  Sex: Male
  Weight: 75 kg

DRUGS (13)
  1. OXYCODONE (OXYCODONE) [Suspect]
     Active Substance: OXYCODONE
     Indication: HEADACHE
  2. PREDNISONE (PREDNISONE ACETATE) [Concomitant]
  3. CHOLECALCIFEROL [Concomitant]
     Active Substance: CHOLECALCIFEROL
  4. LISINOPROL [Concomitant]
     Active Substance: LISINOPRIL
  5. ZOMETA [Concomitant]
     Active Substance: ZOLEDRONIC ACID
  6. BENADRYL [Concomitant]
     Active Substance: DIPHENHYDRAMINE HYDROCHLORIDE
  7. LUPRON (LEUPRORELIN ACETATE) INJECTION [Concomitant]
  8. ONDANSETRON [Concomitant]
     Active Substance: ONDANSETRON
  9. RADIUM [Concomitant]
     Active Substance: RADIUM
  10. ZOLPIDEM [Concomitant]
     Active Substance: ZOLPIDEM\ZOLPIDEM TARTRATE
  11. TYLENOL [Concomitant]
     Active Substance: ACETAMINOPHEN
  12. PROVENGE [Suspect]
     Active Substance: SIPULEUCEL-T
     Indication: PROSTATE CANCER METASTATIC
     Dosage: 250 ML, SINGLE, INTRAVENOUS
     Route: 042
     Dates: start: 20150226, end: 20150226
  13. MARIJUANA [Concomitant]
     Active Substance: CANNABIS SATIVA SUBSP. INDICA TOP

REACTIONS (19)
  - Night sweats [None]
  - Vomiting [None]
  - Prostatic specific antigen increased [None]
  - Transfusion reaction [None]
  - Chest pain [None]
  - Oedema peripheral [None]
  - Asthenia [None]
  - Malaise [None]
  - Nausea [None]
  - Fatigue [None]
  - Haematocrit decreased [None]
  - Pyrexia [None]
  - Constipation [None]
  - Musculoskeletal pain [None]
  - Decreased appetite [None]
  - Hypertension [None]
  - Pallor [None]
  - Blood alkaline phosphatase increased [None]
  - Dyspnoea exertional [None]

NARRATIVE: CASE EVENT DATE: 20150309
